FAERS Safety Report 18864949 (Version 3)
Quarter: 2021Q2

REPORT INFORMATION
  Report Type: Report from Study
  Country: CN (occurrence: CN)
  Receive Date: 20210209
  Receipt Date: 20210505
  Transmission Date: 20210717
  Serious: Yes (Life-Threatening, Hospitalization)
  Sender: FDA-Public Use
  Company Number: CN-IMMUNOMEDICS, INC.-2021IMMU000079

PATIENT
  Age: 53 Year
  Sex: Female
  Weight: 55 kg

DRUGS (4)
  1. SACITUZUMAB GOVITECAN. [Suspect]
     Active Substance: SACITUZUMAB GOVITECAN
     Dosage: 550 MG, D1 AND D8 OF EVERY 21 DAYS
     Route: 042
     Dates: start: 20210128, end: 20210128
  2. ROSUVASTATIN CALCIUM. [Concomitant]
     Active Substance: ROSUVASTATIN CALCIUM
     Indication: HYPERCHOLESTEROLAEMIA
     Dosage: 10 MG, QD
     Route: 065
     Dates: start: 20210127
  3. SACITUZUMAB GOVITECAN. [Suspect]
     Active Substance: SACITUZUMAB GOVITECAN
     Indication: TRIPLE NEGATIVE BREAST CANCER
     Dosage: 550 MG, D1 AND D8 OF EVERY 21 DAYS
     Route: 042
     Dates: start: 20210122, end: 20210122
  4. FAT SOLUBLE VITAMIN FOR INJECTION II [Concomitant]
     Indication: NUTRITIONAL SUPPLEMENTATION
     Dosage: 1 BOTTLE, QD
     Route: 065
     Dates: start: 20210103, end: 20210210

REACTIONS (2)
  - Neutrophil count decreased [Recovered/Resolved]
  - White blood cell count decreased [Recovered/Resolved]

NARRATIVE: CASE EVENT DATE: 20210203
